FAERS Safety Report 24036248 (Version 2)
Quarter: 2024Q3

REPORT INFORMATION
  Report Type: Spontaneous
  Country: US (occurrence: US)
  Receive Date: 20240701
  Receipt Date: 20240801
  Transmission Date: 20241016
  Serious: No
  Sender: PFIZER
  Company Number: US-PFIZER INC-202400202652

PATIENT
  Age: 44 Year
  Sex: Female
  Weight: 77.11 kg

DRUGS (2)
  1. PREMARIN [Suspect]
     Active Substance: ESTROGENS, CONJUGATED
     Indication: Hormone replacement therapy
     Dosage: 1.25MG ONCE A DAY, YELLOW OVALS
     Dates: start: 202209
  2. CREON [Concomitant]
     Active Substance: PANCRELIPASE AMYLASE\PANCRELIPASE LIPASE\PANCRELIPASE PROTEASE
     Indication: Pancreatic disorder
     Dosage: UNK

REACTIONS (9)
  - Arachnoid cyst [Unknown]
  - Cerebral cyst [Unknown]
  - Hot flush [Unknown]
  - Lacrimation increased [Unknown]
  - Anger [Unknown]
  - Night sweats [Unknown]
  - Hyperhidrosis [Unknown]
  - Erythema [Unknown]
  - Sleep disorder [Unknown]
